FAERS Safety Report 5506719-3 (Version None)
Quarter: 2007Q4

REPORT INFORMATION
  Report Type: 
  Country: None (occurrence: None)
  Receive Date: 20071105
  Receipt Date: 20071024
  Transmission Date: 20080405
  Serious: Yes (Other)
  Sender: FDA-Public Use
  Company Number: CA-ELI_LILLY_AND_COMPANY-CA200710006617

PATIENT
  Age: 79 Year
  Sex: Female

DRUGS (9)
  1. FORTEO [Suspect]
     Indication: OSTEOPOROSIS
     Dosage: 20 UG, DAILY (1/D)
     Route: 058
     Dates: start: 20060805
  2. CENTRUM SILVER [Concomitant]
  3. ATACAND [Concomitant]
  4. PANTOLOC /01263201/ [Concomitant]
  5. TENORMIN [Concomitant]
  6. ATIVAN [Concomitant]
  7. AVENTYL HCL [Concomitant]
  8. CALCIUM [Concomitant]
  9. VITAMIN D [Concomitant]

REACTIONS (2)
  - BREAST CANCER [None]
  - GLAUCOMA [None]
